FAERS Safety Report 5325137-4 (Version None)
Quarter: 2007Q2

REPORT INFORMATION
  Report Type: 
  Country: None (occurrence: None)
  Receive Date: 20070511
  Receipt Date: 20070511
  Transmission Date: 20071010
  Serious: Yes (Life-Threatening)
  Sender: FDA-Public Use
  Company Number: None

PATIENT
  Sex: Female

DRUGS (3)
  1. PHENYTOIN [Suspect]
     Indication: EPILEPSY
     Dosage: 300 MG BID PO
     Route: 048
     Dates: start: 20050101, end: 20070401
  2. PHENYTOIN [Suspect]
     Dosage: 300 MG BID PO
     Route: 048
     Dates: start: 20070401, end: 20070510
  3. LAMICTAL [Concomitant]

REACTIONS (4)
  - DIPLOPIA [None]
  - DRUG LEVEL INCREASED [None]
  - PHARMACEUTICAL PRODUCT COMPLAINT [None]
  - SEDATION [None]
